FAERS Safety Report 5238860-7 (Version None)
Quarter: 2007Q1

REPORT INFORMATION
  Report Type: 
  Country: None (occurrence: None)
  Receive Date: 20070215
  Receipt Date: 20070212
  Transmission Date: 20070707
  Serious: Yes (Death, Hospitalization, Other)
  Sender: FDA-Public Use
  Company Number: RO-PFIZER INC-2007009291

PATIENT
  Sex: Female
  Weight: 60 kg

DRUGS (4)
  1. SILDENAFIL (PAH) [Suspect]
     Indication: PULMONARY HYPERTENSION
     Route: 048
  2. FUROSEMIDE [Concomitant]
     Route: 048
  3. SPIRONOLACTONE [Concomitant]
     Route: 048
     Dates: start: 20040801
  4. ACENOCUMAROL [Concomitant]
     Route: 048
     Dates: start: 20040801

REACTIONS (6)
  - CARDIAC ARREST [None]
  - CARDIAC FAILURE [None]
  - CYANOSIS [None]
  - DYSPNOEA [None]
  - MENTAL STATUS CHANGES [None]
  - VENTRICULAR FIBRILLATION [None]
